FAERS Safety Report 7329157 (Version 2)
Quarter: 2013Q4

REPORT INFORMATION
  Report Type: Spontaneous
  Country: US (occurrence: None)
  Receive Date: 20100305
  Receipt Date: 20131017
  Transmission Date: 20140711
  Serious: Yes (Other)
  Sender: FDA-Public Use
  Company Number: 2010S1000765

PATIENT
  Sex: Male

DRUGS (1)
  1. SODIUM PHOSPHATE, DIBASIC [Suspect]
     Indication: COLONOSCOPY
     Dosage: PO
     Route: 048
     Dates: start: 20031221, end: 20031221

REACTIONS (4)
  - Renal disorder [None]
  - Haemodialysis [None]
  - Blood creatine increased [None]
  - Glomerular filtration rate decreased [None]
